FAERS Safety Report 6336006-5 (Version None)
Quarter: 2009Q3

REPORT INFORMATION
  Report Type: 
  Country: None (occurrence: None)
  Receive Date: 20090901
  Receipt Date: 20090825
  Transmission Date: 20100115
  Serious: Yes (Other)
  Sender: FDA-Public Use
  Company Number: US-BAYER-200930911NA

PATIENT
  Sex: Female

DRUGS (1)
  1. MIRENA [Suspect]
     Indication: DRUG USE FOR UNKNOWN INDICATION
     Dosage: CONTINUOUS
     Route: 015

REACTIONS (5)
  - BACK PAIN [None]
  - IUCD COMPLICATION [None]
  - IUD MIGRATION [None]
  - PAINFUL DEFAECATION [None]
  - VAGINAL HAEMORRHAGE [None]
